FAERS Safety Report 18147598 (Version 2)
Quarter: 2023Q1

REPORT INFORMATION
  Report Type: Spontaneous
  Country: DE (occurrence: DE)
  Receive Date: 20200814
  Receipt Date: 20230118
  Transmission Date: 20230417
  Serious: Yes (Hospitalization)
  Sender: FDA-Public Use
  Company Number: DE-ADRED-05138-01

PATIENT
  Age: 82 Year
  Sex: Female

DRUGS (9)
  1. ASPIRIN [Suspect]
     Active Substance: ASPIRIN
     Indication: Product used for unknown indication
     Dosage: 100 MILLIGRAM (0-0-1-0)
     Route: 065
  2. ESCITALOPRAM [Suspect]
     Active Substance: ESCITALOPRAM OXALATE
     Indication: Product used for unknown indication
     Dosage: UNK (2-0-0-0)
     Route: 065
  3. LAMOTRIGINE [Suspect]
     Active Substance: LAMOTRIGINE
     Indication: Product used for unknown indication
     Dosage: 50 MILLIGRAM (1-0-1-0)
     Route: 065
  4. ZYPREXA [Suspect]
     Active Substance: OLANZAPINE
     Indication: Product used for unknown indication
     Dosage: 2.5 MILLIGRAM ( 0-0-1-0)
     Route: 065
  5. PANTOPRAZOLE [Concomitant]
     Active Substance: PANTOPRAZOLE
     Indication: Product used for unknown indication
     Dosage: 40 MILLIGRAM (1-0-0-0)
     Route: 065
  6. AGGRENOX [Concomitant]
     Active Substance: ASPIRIN\DIPYRIDAMOLE
     Indication: Product used for unknown indication
     Dosage: UNK (DISCONTINUED ON 12052020)
     Route: 065
  7. SIMVASTATIN [Concomitant]
     Active Substance: SIMVASTATIN
     Indication: Product used for unknown indication
     Dosage: 40 MILLIGRAM 0-0-1-0
     Route: 065
  8. Tavor [Concomitant]
     Indication: Product used for unknown indication
     Dosage: 0.5 MILLIGRAM (REQUIREMENT)
     Route: 065
  9. METFORMIN [Concomitant]
     Active Substance: METFORMIN HYDROCHLORIDE
     Indication: Product used for unknown indication
     Dosage: 1 GRAM (0.5-0-0.5-0)
     Route: 065

REACTIONS (4)
  - Asthenia [Recovering/Resolving]
  - Apathy [Recovering/Resolving]
  - Constipation [Recovering/Resolving]
  - General physical health deterioration [Recovering/Resolving]
